FAERS Safety Report 9396261 (Version 4)
Quarter: 2013Q3

REPORT INFORMATION
  Report Type: Report from Study
  Country: DE (occurrence: DE)
  Receive Date: 20130711
  Receipt Date: 20130814
  Transmission Date: 20140515
  Serious: Yes (Hospitalization)
  Sender: FDA-Public Use
  Company Number: DE-AMGEN-DEUCT2013046618

PATIENT
  Sex: Male
  Weight: 63 kg

DRUGS (7)
  1. PANITUMUMAB [Suspect]
     Indication: OESOPHAGEAL SQUAMOUS CELL CARCINOMA METASTATIC
     Dosage: 567 MG, Q3WK
     Route: 042
     Dates: start: 20130618
  2. CISPLATIN [Concomitant]
     Indication: OESOPHAGEAL SQUAMOUS CELL CARCINOMA METASTATIC
     Dosage: 180 MG, Q3WK
     Route: 042
     Dates: start: 20130618
  3. 5-FU [Concomitant]
     Indication: OESOPHAGEAL SQUAMOUS CELL CARCINOMA METASTATIC
     Dosage: 7200 MG, Q3WK
     Route: 042
     Dates: start: 20130618
  4. NOVALGIN [Concomitant]
     Dosage: UNK
  5. DOXYCYCLINE [Concomitant]
     Dosage: 100 MG, UNK
  6. JUVEN [Concomitant]
     Dosage: 70 MG, UNK
  7. TOREM [Concomitant]
     Dosage: 20 MG, UNK

REACTIONS (1)
  - Prerenal failure [Recovered/Resolved]
